FAERS Safety Report 5239618-5 (Version None)
Quarter: 2007Q1

REPORT INFORMATION
  Report Type: 
  Country: None (occurrence: None)
  Receive Date: 20070216
  Receipt Date: 20070215
  Transmission Date: 20070707
  Serious: Yes (Death, Life-Threatening, Hospitalization, Disabling, Other)
  Sender: FDA-Public Use
  Company Number: GB-GLAXOSMITHKLINE-B0450161A

PATIENT
  Age: 51 Year
  Sex: Male
  Weight: 78 kg

DRUGS (4)
  1. KIVEXA [Suspect]
     Indication: HIV INFECTION
     Dosage: 1TAB PER DAY
     Route: 048
     Dates: start: 20060405, end: 20061114
  2. ATAZANAVIR [Concomitant]
     Dosage: 300MG PER DAY
     Route: 048
     Dates: start: 20060405, end: 20061114
  3. LAMIVUDINE [Concomitant]
     Route: 048
     Dates: start: 20060405, end: 20061114
  4. RITONAVIR [Concomitant]
     Dosage: 100MG PER DAY
     Route: 048
     Dates: start: 20060405, end: 20061114

REACTIONS (10)
  - DIARRHOEA [None]
  - DRUG HYPERSENSITIVITY [None]
  - GALLBLADDER DISORDER [None]
  - HYPOTENSION [None]
  - ILEUS [None]
  - MULTI-ORGAN FAILURE [None]
  - PYREXIA [None]
  - RASH [None]
  - RENAL FAILURE [None]
  - SEVERE ACUTE RESPIRATORY SYNDROME [None]
